FAERS Safety Report 20768784 (Version 1)
Quarter: 2022Q2

REPORT INFORMATION
  Report Type: Spontaneous
  Country: CA (occurrence: None)
  Receive Date: 20220429
  Receipt Date: 20220429
  Transmission Date: 20220721
  Serious: Yes (Other)
  Sender: FDA-Public Use
  Company Number: CA-ROCHE-3084219

PATIENT
  Age: 31 Year
  Sex: Female

DRUGS (1)
  1. RITUXIMAB [Suspect]
     Active Substance: RITUXIMAB
     Indication: Relapsing-remitting multiple sclerosis
     Route: 041

REACTIONS (5)
  - Affective disorder [Recovered/Resolved]
  - Amnesia [Recovered/Resolved]
  - Disorientation [Recovered/Resolved]
  - Product use in unapproved indication [Recovered/Resolved]
  - Progressive multifocal leukoencephalopathy [Recovered/Resolved]
